FAERS Safety Report 9031591 (Version 1)
Quarter: 2013Q1

REPORT INFORMATION
  Report Type: Spontaneous
  Country: US (occurrence: US)
  Receive Date: 20130124
  Receipt Date: 20130124
  Transmission Date: 20140127
  Serious: Yes (Other)
  Sender: FDA-Public Use
  Company Number: US-JNJFOC-20130110327

PATIENT
  Age: 82 Year
  Sex: Male
  Weight: 98.88 kg

DRUGS (11)
  1. BENADRYL ALLERGY ULTRATAB [Suspect]
     Indication: RHINORRHOEA
     Dosage: 2 TABLETS IN THE MORNING, 1 IN THE NOON AND 1 IN THE IN THE EVENING, NDC 50580-226-14
     Route: 048
     Dates: start: 20130103, end: 20130115
  2. BENADRYL ALLERGY ULTRATAB [Suspect]
     Indication: MULTIPLE ALLERGIES
     Dosage: 2 TABLETS IN THE MORNING, 1 IN THE NOON AND 1 IN THE IN THE EVENING, NDC 50580-226-14
     Route: 048
     Dates: start: 20130103, end: 20130115
  3. SIMVASTATIN [Concomitant]
     Indication: HYPERTENSION
     Dosage: 3 MONTHS
     Route: 065
     Dates: start: 201210
  4. VERAPAMIL [Concomitant]
     Indication: HYPERTENSION
     Dosage: 25 YEARS
     Route: 065
     Dates: start: 1985
  5. CARVEDILOL [Concomitant]
     Indication: HYPERTENSION
     Dosage: 3 MONTHS
     Route: 065
     Dates: start: 201210
  6. FUROSEMIDE [Concomitant]
     Indication: HYPERTENSION
     Dosage: 6 MONTHS
     Route: 065
     Dates: start: 201206
  7. LISINOPRIL [Concomitant]
     Indication: HYPERTENSION
     Dosage: 3 MONTHS
     Route: 065
     Dates: start: 201210
  8. GLIPIZIDE [Concomitant]
     Indication: HYPERTENSION
     Dosage: 3 MONTHS
     Route: 065
     Dates: start: 201210
  9. GLIPIZIDE [Concomitant]
     Indication: BLOOD GLUCOSE FLUCTUATION
     Dosage: 3 MONTHS
     Route: 065
     Dates: start: 201210
  10. OMEPRAZOLE [Concomitant]
     Indication: GASTRIC DISORDER
     Dosage: 3 YEARS
     Route: 065
     Dates: start: 2010
  11. DOXAZOSIN [Concomitant]
     Dosage: AT BEDTIME, 1 YEAR
     Route: 065
     Dates: start: 201201

REACTIONS (1)
  - Blood pressure increased [Not Recovered/Not Resolved]
